FAERS Safety Report 5148808-1 (Version None)
Quarter: 2006Q4

REPORT INFORMATION
  Report Type: 
  Country: None (occurrence: None)
  Receive Date: 20061107
  Receipt Date: 20060804
  Transmission Date: 20070319
  Serious: Yes (Hospitalization)
  Sender: FDA-Public Use
  Company Number: ZYD-AE-06-050

PATIENT
  Age: 56 Year
  Sex: Female

DRUGS (6)
  1. RIBAVIRIN [Suspect]
     Dosage: 400 MG BID ORAL
     Route: 048
     Dates: start: 20060101
  2. PEG-INTRON [Suspect]
     Dosage: IV
     Route: 042
     Dates: start: 20060101
  3. AVINZA [Concomitant]
  4. ZANAFLEX [Concomitant]
  5. EFFEXOR XR [Concomitant]
  6. AMBIEN [Concomitant]

REACTIONS (4)
  - ABNORMAL BEHAVIOUR [None]
  - AMNESIA [None]
  - ENCEPHALITIS [None]
  - LOSS OF CONSCIOUSNESS [None]
